FAERS Safety Report 17141208 (Version 1)
Quarter: 2019Q4

REPORT INFORMATION
  Report Type: Spontaneous
  Country: BE (occurrence: BE)
  Receive Date: 20191211
  Receipt Date: 20191211
  Transmission Date: 20200122
  Serious: Yes (Hospitalization)
  Sender: FDA-Public Use
  Company Number: BE-009507513-1911BEL002324

PATIENT
  Age: 35 Year
  Sex: Female
  Weight: 54 kg

DRUGS (6)
  1. PREGNYL [Suspect]
     Active Substance: CHORIOGONADOTROPIN ALFA
     Dosage: UNK
  2. RUPATALL [Concomitant]
     Indication: HYPERSENSITIVITY
     Dosage: 10 MILLIGRAM
     Route: 048
  3. PREGNYL [Suspect]
     Active Substance: CHORIOGONADOTROPIN ALFA
     Dosage: ONCE
     Dates: start: 20191028, end: 20191028
  4. GONAL-F [Concomitant]
     Active Substance: FOLLITROPIN
     Indication: ASSISTED FERTILISATION
     Dosage: 125 INTERNATIONAL UNIT, QD
     Route: 058
     Dates: start: 20191018, end: 20191028
  5. FOLIC ACID. [Concomitant]
     Active Substance: FOLIC ACID
     Indication: ASSISTED FERTILISATION
     Dosage: 0.4 MILLIGRAM, QD
     Route: 048
  6. SUPREFACT [Concomitant]
     Active Substance: BUSERELIN
     Indication: ASSISTED FERTILISATION
     Dosage: 0.1 MILLIGRAM
     Route: 045
     Dates: start: 20191011, end: 20191028

REACTIONS (1)
  - Human chorionic gonadotropin negative [Recovered/Resolved]

NARRATIVE: CASE EVENT DATE: 20191030
